FAERS Safety Report 23135933 (Version 2)
Quarter: 2024Q4

REPORT INFORMATION
  Report Type: Report from Study
  Country: FR (occurrence: FR)
  Receive Date: 20231101
  Receipt Date: 20241107
  Transmission Date: 20250114
  Serious: Yes (Hospitalization)
  Sender: ABBVIE
  Company Number: FR-ABBVIE-5475597

PATIENT
  Age: 64 Year
  Sex: Female

DRUGS (11)
  1. RISANKIZUMAB [Suspect]
     Active Substance: RISANKIZUMAB
     Indication: Psoriasis
     Route: 058
     Dates: start: 20210904
  2. RISANKIZUMAB [Suspect]
     Active Substance: RISANKIZUMAB
     Route: 058
     Dates: start: 20210804, end: 20210904
  3. SYMBICORT [Concomitant]
     Active Substance: BUDESONIDE\FORMOTEROL FUMARATE DIHYDRATE
     Indication: Asthma
     Route: 055
     Dates: start: 20200312
  4. AZOPT [Concomitant]
     Active Substance: BRINZOLAMIDE
     Indication: Glaucoma
     Route: 061
     Dates: start: 20080701
  5. LATANOPROST [Concomitant]
     Active Substance: LATANOPROST
     Indication: Glaucoma
     Dosage: FREQUENCY TEXT: 1
     Route: 061
     Dates: start: 20100708
  6. NASONEX [Concomitant]
     Active Substance: MOMETASONE FUROATE
     Indication: Rhinitis
     Dosage: FREQUENCY TEXT: AS NEEDED
     Route: 061
     Dates: start: 20220324
  7. PRASUGREL HYDROCHLORIDE [Concomitant]
     Active Substance: PRASUGREL HYDROCHLORIDE
     Indication: Vascular disorder prophylaxis
     Dosage: FREQUENCY TEXT: 1
     Route: 048
     Dates: start: 20230301
  8. ATORVASTATIN CALCIUM TRIHYDRATE\EZETIMIBE [Concomitant]
     Active Substance: ATORVASTATIN CALCIUM TRIHYDRATE\EZETIMIBE
     Indication: Hypocholesterolaemia
     Dosage: FREQUENCY TEXT: 1
     Route: 048
     Dates: start: 20230301
  9. DILTIAZEM [Concomitant]
     Active Substance: DILTIAZEM
     Indication: Vasodilatation
     Dosage: FREQUENCY TEXT: 1
     Route: 048
     Dates: start: 20230301
  10. PANTOPRAZOLE [Concomitant]
     Active Substance: PANTOPRAZOLE
     Indication: Gastrointestinal disorder prophylaxis
     Dosage: FREQUENCY TEXT: 1
     Route: 048
     Dates: start: 20230301
  11. KARDEGIC [Concomitant]
     Active Substance: ASPIRIN DL-LYSINE
     Indication: Coronary artery disease
     Dosage: FREQUENCY TEXT: 1
     Route: 048
     Dates: start: 20230301

REACTIONS (1)
  - Myocardial infarction [Recovered/Resolved]

NARRATIVE: CASE EVENT DATE: 20230301
